FAERS Safety Report 18755924 (Version 1)
Quarter: 2021Q1

REPORT INFORMATION
  Report Type: Spontaneous
  Country: US (occurrence: US)
  Receive Date: 20210116
  Receipt Date: 20210116
  Transmission Date: 20210419
  Serious: No
  Sender: FDA-Public Use
  Company Number: None

PATIENT
  Age: 42 Year
  Sex: Female
  Weight: 74.25 kg

DRUGS (3)
  1. ELIQUIS [Suspect]
     Active Substance: APIXABAN
     Indication: DEEP VEIN THROMBOSIS
     Route: 048
     Dates: start: 20200901, end: 20210115
  2. VITAMIN D [Concomitant]
     Active Substance: VITAMIN D NOS
  3. IRON [Concomitant]
     Active Substance: IRON

REACTIONS (6)
  - Arthralgia [None]
  - Pain in extremity [None]
  - Fatigue [None]
  - Dyspnoea [None]
  - Myalgia [None]
  - Musculoskeletal stiffness [None]

NARRATIVE: CASE EVENT DATE: 20200921
